FAERS Safety Report 5599743-6 (Version None)
Quarter: 2008Q1

REPORT INFORMATION
  Report Type: 
  Country: None (occurrence: None)
  Receive Date: 20080123
  Receipt Date: 20080116
  Transmission Date: 20080703
  Serious: Yes (Death, Hospitalization)
  Sender: FDA-Public Use
  Company Number: FR-BRISTOL-MYERS SQUIBB COMPANY-14044267

PATIENT
  Age: 61 Year
  Sex: Male

DRUGS (4)
  1. ELISOR TABS [Suspect]
  2. CISPLATIN [Suspect]
     Indication: SQUAMOUS CELL CARCINOMA
     Dates: start: 20070701, end: 20071001
  3. TAXOTERE [Suspect]
     Indication: SQUAMOUS CELL CARCINOMA
     Dates: start: 20070715, end: 20071015
  4. FLUOROURACIL [Suspect]
     Indication: SQUAMOUS CELL CARCINOMA
     Dates: start: 20070701, end: 20071001

REACTIONS (3)
  - INTERSTITIAL LUNG DISEASE [None]
  - RESPIRATORY DISTRESS [None]
  - SHOCK [None]
